FAERS Safety Report 21410002 (Version 1)
Quarter: 2022Q4

REPORT INFORMATION
  Report Type: Report from Study
  Country: IT (occurrence: IT)
  Receive Date: 20221005
  Receipt Date: 20221005
  Transmission Date: 20230113
  Serious: Yes (Other)
  Sender: FDA-Public Use
  Company Number: None

PATIENT
  Age: 46 Year
  Sex: Female

DRUGS (2)
  1. TACROLIMUS [Suspect]
     Active Substance: TACROLIMUS
     Indication: Vitiligo
     Dosage: 1 APPLICATION/DAY FOR 8 WEEKS
     Route: 003
     Dates: start: 20210510, end: 20210713
  2. TACROLIMUS [Suspect]
     Active Substance: TACROLIMUS
     Indication: Vitiligo
     Dosage: 1 APPLICATION/DAY FOR 8 WEEKS
     Route: 003
     Dates: start: 20210510, end: 20210713

REACTIONS (6)
  - Erythema [Unknown]
  - Off label use [Unknown]
  - Burning sensation [Unknown]
  - Product use in unapproved indication [Unknown]
  - Blister [Unknown]
  - Dermatitis bullous [Recovered/Resolved with Sequelae]

NARRATIVE: CASE EVENT DATE: 20210714
